FAERS Safety Report 16788529 (Version 2)
Quarter: 2019Q4

REPORT INFORMATION
  Report Type: Spontaneous
  Country: US (occurrence: US)
  Receive Date: 20190910
  Receipt Date: 20191104
  Transmission Date: 20200122
  Serious: No
  Sender: FDA-Public Use
  Company Number: US-BIOGEN-2019BI00783201

PATIENT
  Age: 19 Year
  Sex: Male

DRUGS (1)
  1. TECFIDERA [Suspect]
     Active Substance: DIMETHYL FUMARATE
     Indication: MULTIPLE SCLEROSIS
     Route: 048
     Dates: start: 20190312

REACTIONS (3)
  - Nail discolouration [Unknown]
  - Central nervous system lesion [Unknown]
  - Onychoclasis [Unknown]

NARRATIVE: CASE EVENT DATE: 20190312
